FAERS Safety Report 9356525 (Version 1)
Quarter: 2013Q2

REPORT INFORMATION
  Report Type: Spontaneous
  Country: DK (occurrence: None)
  Receive Date: 20130614
  Receipt Date: 20130614
  Transmission Date: 20140414
  Serious: Yes (Hospitalization, Other)
  Sender: FDA-Public Use
  Company Number: 2013P1007295

PATIENT
  Age: 21 Month
  Sex: Male

DRUGS (1)
  1. AMOXICILLIN [Suspect]
     Indication: PNEUMONIA

REACTIONS (5)
  - Rash pruritic [None]
  - Skin lesion [None]
  - Gait disturbance [None]
  - Urticaria [None]
  - Erythema [None]
